FAERS Safety Report 4875708-4 (Version None)
Quarter: 2006Q1

REPORT INFORMATION
  Report Type: 
  Country: None (occurrence: None)
  Receive Date: 20060105
  Receipt Date: 20051228
  Transmission Date: 20060701
  Serious: Yes (Life-Threatening, Hospitalization)
  Sender: FDA-Public Use
  Company Number: TAP2005Q02164

PATIENT
  Age: 79 Year
  Sex: Female
  Weight: 60.782 kg

DRUGS (4)
  1. PREVACID [Suspect]
     Indication: GASTRITIS
     Dosage: 30 MG, 1 IN 1 D, PER ORAL
     Route: 048
     Dates: start: 20050101
  2. SYNTHROID [Suspect]
     Indication: HYPOTHYROIDISM
     Dosage: 0.25 MG, 1 IN 1 D, PER ORAL
     Route: 048
     Dates: start: 20031201
  3. UNSPECIFIED HOMEOPATHIC MEDICINE [Suspect]
  4. OXAZEPAM [Concomitant]

REACTIONS (13)
  - ASTHENIA [None]
  - CARDIO-RESPIRATORY ARREST [None]
  - CHOKING [None]
  - COMA [None]
  - CONFUSIONAL STATE [None]
  - DYSPEPSIA [None]
  - GASTROOESOPHAGEAL REFLUX DISEASE [None]
  - HYPOKALAEMIA [None]
  - HYPOMAGNESAEMIA [None]
  - HYPONATRAEMIA [None]
  - HYPOTHYROIDISM [None]
  - NAUSEA [None]
  - POLYDIPSIA [None]
